FAERS Safety Report 16881110 (Version 1)
Quarter: 2019Q4

REPORT INFORMATION
  Report Type: Spontaneous
  Country: US (occurrence: US)
  Receive Date: 20190807
  Receipt Date: 20190807
  Transmission Date: 20200122
  Serious: Yes (Death, Hospitalization)
  Sender: FDA-Public Use
  Company Number: None

PATIENT
  Age: 74 Year
  Sex: Male
  Weight: 110.22 kg

DRUGS (1)
  1. APIXABAN [Suspect]
     Active Substance: APIXABAN
     Indication: ATRIAL FIBRILLATION
     Route: 048
     Dates: start: 20190225, end: 20190407

REACTIONS (7)
  - Nausea [None]
  - Erosive duodenitis [None]
  - Dizziness [None]
  - Erosive oesophagitis [None]
  - Hypotension [None]
  - Cardiac failure acute [None]
  - Gastric haemorrhage [None]

NARRATIVE: CASE EVENT DATE: 20190403
